FAERS Safety Report 12687355 (Version 1)
Quarter: 2016Q3

REPORT INFORMATION
  Report Type: Spontaneous
  Country: US (occurrence: US)
  Receive Date: 20160825
  Receipt Date: 20160825
  Transmission Date: 20161109
  Serious: No
  Sender: FDA-Public Use
  Company Number: US-NOVOPROD-471155

PATIENT
  Age: 47 Year
  Sex: Male

DRUGS (1)
  1. VICTOZA [Suspect]
     Active Substance: LIRAGLUTIDE
     Indication: PRODUCT USED FOR UNKNOWN INDICATION
     Route: 058

REACTIONS (10)
  - Urticaria [Unknown]
  - Somnolence [Unknown]
  - Retching [Unknown]
  - Decreased appetite [Unknown]
  - Respiratory disorder [Unknown]
  - Chest pain [Unknown]
  - Fatigue [Unknown]
  - Asthenia [Unknown]
  - Throat tightness [Unknown]
  - Nausea [Unknown]
